FAERS Safety Report 14499369 (Version 1)
Quarter: 2018Q1

REPORT INFORMATION
  Report Type: Spontaneous
  Country: US (occurrence: US)
  Receive Date: 20180206
  Receipt Date: 20180206
  Transmission Date: 20180509
  Serious: Yes (Disabling)
  Sender: FDA-Public Use
  Company Number: None

PATIENT
  Age: 5 Year
  Sex: Female
  Weight: 23.4 kg

DRUGS (8)
  1. GUMMY VITAMINS [Concomitant]
  2. LEVETIRACETAM. [Suspect]
     Active Substance: LEVETIRACETAM
     Indication: SEIZURE
     Dosage: ?          QUANTITY:4 CAPSULE(S);?
     Route: 048
     Dates: start: 20171220, end: 20180206
  3. FLONASE [Concomitant]
     Active Substance: FLUTICASONE PROPIONATE
  4. PROBIOTIC [Concomitant]
     Active Substance: PROBIOTICS NOS
  5. SENACOTT [Concomitant]
  6. TRILEPTAL [Concomitant]
     Active Substance: OXCARBAZEPINE
  7. LACTULOSE. [Concomitant]
     Active Substance: LACTULOSE
  8. COQ10 [Concomitant]
     Active Substance: UBIDECARENONE

REACTIONS (4)
  - Aggression [None]
  - Abnormal behaviour [None]
  - Screaming [None]
  - Irritability [None]

NARRATIVE: CASE EVENT DATE: 20180206
